FAERS Safety Report 5944378-6 (Version None)
Quarter: 2008Q4

REPORT INFORMATION
  Report Type: 
  Country: None (occurrence: None)
  Receive Date: 20081106
  Receipt Date: 20081106
  Transmission Date: 20090506
  Serious: Yes (Death, Hospitalization)
  Sender: FDA-Public Use
  Company Number: None

PATIENT
  Sex: Female
  Weight: 75 kg

DRUGS (2)
  1. CARBOPLATIN [Suspect]
     Dosage: 455 MG
     Dates: end: 20080609
  2. TAXOL [Suspect]
     Dosage: 310 MG
     Dates: end: 20080609

REACTIONS (12)
  - ANAEMIA [None]
  - ASCITES [None]
  - BACTERIA SPUTUM IDENTIFIED [None]
  - CANDIDIASIS [None]
  - DEEP VEIN THROMBOSIS [None]
  - DEHYDRATION [None]
  - MELAENA [None]
  - NEUTROPENIA [None]
  - PLEURAL EFFUSION [None]
  - PRODUCTIVE COUGH [None]
  - THROMBOPHLEBITIS SUPERFICIAL [None]
  - WHITE BLOOD CELL COUNT DECREASED [None]
